FAERS Safety Report 20704120 (Version 1)
Quarter: 2022Q2

REPORT INFORMATION
  Report Type: Spontaneous
  Country: US (occurrence: None)
  Receive Date: 20220413
  Receipt Date: 20220413
  Transmission Date: 20220720
  Serious: Yes (Other)
  Sender: FDA-Public Use
  Company Number: 2022A146178

PATIENT
  Age: 57 Year
  Sex: Male

DRUGS (2)
  1. OSIMERTINIB [Suspect]
     Active Substance: OSIMERTINIB
     Indication: Lung adenocarcinoma stage IV
     Route: 048
  2. SELPERCATINIB [Concomitant]
     Active Substance: SELPERCATINIB
     Route: 065

REACTIONS (5)
  - Drug resistance [Unknown]
  - EGFR gene mutation [Unknown]
  - Hypomagnesaemia [Unknown]
  - Presyncope [Unknown]
  - Nausea [Unknown]
